FAERS Safety Report 9862107 (Version 1)
Quarter: 2014Q1

REPORT INFORMATION
  Report Type: Spontaneous
  Country: US (occurrence: US)
  Receive Date: 20140203
  Receipt Date: 20140203
  Transmission Date: 20141002
  Serious: Yes (Hospitalization)
  Sender: FDA-Public Use
  Company Number: US-CELGENEUS-163-21880-14014031

PATIENT
  Age: 87 Year
  Sex: Female

DRUGS (3)
  1. REVLIMID [Suspect]
     Indication: LYMPHADENOPATHY
     Dosage: 5 MILLIGRAM
     Route: 048
     Dates: start: 201208
  2. REVLIMID [Suspect]
     Dosage: 2.5 MILLIGRAM
     Route: 048
     Dates: start: 201307
  3. REVLIMID [Suspect]
     Dosage: 2.5 MILLIGRAM
     Route: 048
     Dates: start: 20131121, end: 20131203

REACTIONS (1)
  - Spinal osteoarthritis [Recovered/Resolved]
